FAERS Safety Report 8892557 (Version 1)
Quarter: 2012Q4

REPORT INFORMATION
  Report Type: 
  Country: US (occurrence: US)
  Receive Date: 20121107
  Receipt Date: 20121107
  Transmission Date: 20130627
  Serious: No
  Sender: FDA-Public Use
  Company Number: US-AMGEN-USASP2011061532

PATIENT
  Age: 31 Year
  Sex: Female

DRUGS (2)
  1. ENBREL [Suspect]
     Indication: ANKYLOSING SPONDYLITIS
     Dosage: 50 mg, qwk
     Dates: start: 20111015, end: 20111108
  2. METHOTREXATE [Concomitant]
     Dosage: 6 mg, qwk
     Dates: start: 201107

REACTIONS (2)
  - Tooth fracture [Not Recovered/Not Resolved]
  - Tooth infection [Not Recovered/Not Resolved]
